FAERS Safety Report 9168530 (Version 2)
Quarter: 2013Q2

REPORT INFORMATION
  Report Type: Spontaneous
  Country: ES (occurrence: ES)
  Receive Date: 20130318
  Receipt Date: 20130401
  Transmission Date: 20140414
  Serious: Yes (Other)
  Sender: FDA-Public Use
  Company Number: ES-UCBSA-080664

PATIENT
  Age: 64 Year
  Sex: Female

DRUGS (6)
  1. CIMZIA [Suspect]
     Indication: RHEUMATOID ARTHRITIS
     Dates: start: 2012, end: 20130304
  2. CIMZIA [Suspect]
     Indication: RHEUMATOID ARTHRITIS
     Dates: start: 20120401, end: 2012
  3. METHOTREXATE [Concomitant]
     Dates: start: 2008, end: 201303
  4. DACORTIN [Concomitant]
     Dosage: DAILY DOSE: 5 MG
     Dates: start: 2008
  5. BESITRAN [Concomitant]
  6. ATORVASTATIN [Concomitant]

REACTIONS (1)
  - Breast neoplasm [Recovering/Resolving]
